FAERS Safety Report 19165465 (Version 2)
Quarter: 2021Q4

REPORT INFORMATION
  Report Type: Spontaneous
  Country: US (occurrence: US)
  Receive Date: 20210421
  Receipt Date: 20211116
  Transmission Date: 20220303
  Serious: No
  Sender: FDA-Public Use
  Company Number: US-SA-SAC20210420000883

PATIENT
  Age: 38 Year
  Sex: Male

DRUGS (1)
  1. CABLIVI [Suspect]
     Active Substance: CAPLACIZUMAB-YHDP
     Indication: Thrombotic microangiopathy
     Dosage: 11 MG, QD
     Route: 058
     Dates: start: 20210406

REACTIONS (2)
  - Platelet count abnormal [Unknown]
  - ADAMTS13 activity abnormal [Unknown]

NARRATIVE: CASE EVENT DATE: 20210101
